FAERS Safety Report 14037100 (Version 2)
Quarter: 2018Q1

REPORT INFORMATION
  Report Type: Spontaneous
  Country: US (occurrence: US)
  Receive Date: 20171004
  Receipt Date: 20180104
  Transmission Date: 20180508
  Serious: No
  Sender: FDA-Public Use
  Company Number: US-009507513-1709USA007140

PATIENT
  Age: 16 Year
  Sex: Female
  Weight: 63.95 kg

DRUGS (2)
  1. NEXPLANON [Suspect]
     Active Substance: ETONOGESTREL
     Dosage: 68 MG/ THREE YEARS
     Route: 059
     Dates: start: 20170913
  2. NEXPLANON [Suspect]
     Active Substance: ETONOGESTREL
     Dosage: NEW ROD
     Route: 059

REACTIONS (4)
  - Device deployment issue [Recovered/Resolved]
  - No adverse event [Unknown]
  - Product quality issue [Unknown]
  - Complication of device insertion [Recovered/Resolved]

NARRATIVE: CASE EVENT DATE: 20170913
